FAERS Safety Report 13650846 (Version 1)
Quarter: 2017Q2

REPORT INFORMATION
  Report Type: Report from Study
  Country: US (occurrence: US)
  Receive Date: 20170614
  Receipt Date: 20170614
  Transmission Date: 20170830
  Serious: Yes (Death, Hospitalization)
  Sender: FDA-Public Use
  Company Number: US-ASTRAZENECA-2016SF02430

PATIENT
  Sex: Male

DRUGS (2)
  1. LYNPARZA [Suspect]
     Active Substance: OLAPARIB
     Indication: PROSTATE CANCER
     Route: 048
     Dates: start: 20160904
  2. LYNPARZA [Suspect]
     Active Substance: OLAPARIB
     Indication: PROSTATE CANCER
     Route: 048

REACTIONS (7)
  - Product use in unapproved indication [Unknown]
  - Nausea [Recovering/Resolving]
  - Death [Fatal]
  - Vomiting [Recovering/Resolving]
  - Musculoskeletal pain [Unknown]
  - Off label use [Unknown]
  - Dehydration [Unknown]
